FAERS Safety Report 5481435-5 (Version None)
Quarter: 2007Q4

REPORT INFORMATION
  Report Type: 
  Country: None (occurrence: None)
  Receive Date: 20071010
  Receipt Date: 20071004
  Transmission Date: 20080405
  Serious: Yes (Other)
  Sender: FDA-Public Use
  Company Number: B0490215A

PATIENT

DRUGS (3)
  1. KIVEXA [Suspect]
  2. KALETRA [Suspect]
  3. COTRIM [Suspect]

REACTIONS (1)
  - HAEMOLYTIC ANAEMIA [None]
